FAERS Safety Report 15111133 (Version 1)
Quarter: 2018Q2

REPORT INFORMATION
  Report Type: Spontaneous
  Country: US (occurrence: US)
  Receive Date: 20180612
  Receipt Date: 20180612
  Transmission Date: 20180711
  Serious: Yes (Hospitalization)
  Sender: FDA-Public Use
  Company Number: None

PATIENT
  Age: 82 Year
  Sex: Male
  Weight: 108.1 kg

DRUGS (3)
  1. DEXAMETHASONE. [Suspect]
     Active Substance: DEXAMETHASONE
     Dates: end: 20180603
  2. VELCADE [Suspect]
     Active Substance: BORTEZOMIB
     Dates: end: 20180603
  3. LENALIDOMIDE (CC-5013) [Suspect]
     Active Substance: LENALIDOMIDE
     Dates: end: 20180606

REACTIONS (7)
  - Dehydration [None]
  - Fall [None]
  - Facial paralysis [None]
  - Unresponsive to stimuli [None]
  - Urinary tract infection [None]
  - Escherichia test positive [None]
  - Asthenia [None]

NARRATIVE: CASE EVENT DATE: 20180607
